FAERS Safety Report 7331324-6 (Version None)
Quarter: 2011Q1

REPORT INFORMATION
  Report Type: 
  Country: None (occurrence: None)
  Receive Date: 20110224
  Receipt Date: 20110217
  Transmission Date: 20110831
  Serious: Yes (Other)
  Sender: FDA-Public Use
  Company Number: 1000018878

PATIENT
  Sex: Male

DRUGS (1)
  1. NAMENDA [Suspect]

REACTIONS (1)
  - THROMBOSIS [None]
